FAERS Safety Report 9550200 (Version 2)
Quarter: 2013Q4

REPORT INFORMATION
  Report Type: Spontaneous
  Country: JP (occurrence: JP)
  Receive Date: 20130924
  Receipt Date: 20131029
  Transmission Date: 20140711
  Serious: Yes (Other)
  Sender: FDA-Public Use
  Company Number: JP-JNJFOC-20130912595

PATIENT
  Age: 3 Year
  Sex: Male

DRUGS (9)
  1. ZYRTEC [Suspect]
     Indication: NASOPHARYNGITIS
     Route: 048
  2. ZYRTEC [Suspect]
     Indication: NASOPHARYNGITIS
     Route: 048
     Dates: start: 20130910, end: 20130911
  3. ZYRTEC [Suspect]
     Indication: RHINITIS ALLERGIC
     Route: 048
  4. ZYRTEC [Suspect]
     Indication: RHINITIS ALLERGIC
     Route: 048
     Dates: start: 20130910, end: 20130911
  5. MUCODYNE [Suspect]
     Indication: NASOPHARYNGITIS
     Route: 048
  6. PULSMARIN A [Suspect]
     Indication: NASOPHARYNGITIS
     Route: 048
  7. ASVERIN [Suspect]
     Indication: NASOPHARYNGITIS
     Route: 048
  8. LEVETIRACETAM [Concomitant]
     Indication: PRODUCT USED FOR UNKNOWN INDICATION
     Route: 048
  9. DEPAKENE [Concomitant]
     Indication: PRODUCT USED FOR UNKNOWN INDICATION
     Route: 048

REACTIONS (2)
  - Epilepsy [Recovered/Resolved]
  - Overdose [Recovered/Resolved]
